FAERS Safety Report 26171635 (Version 2)
Quarter: 2025Q4

REPORT INFORMATION
  Report Type: Report from Study
  Country: CA (occurrence: CA)
  Receive Date: 20251217
  Receipt Date: 20251223
  Transmission Date: 20260118
  Serious: Yes (Death, Other)
  Sender: DAIICHI
  Company Number: CA-DSJP-DS-2025-179198-CA

PATIENT
  Age: 46 Year
  Sex: Male

DRUGS (1)
  1. QUIZARTINIB [Suspect]
     Active Substance: QUIZARTINIB
     Indication: Acute myeloid leukaemia
     Dosage: UNK
     Route: 065

REACTIONS (1)
  - Death [Fatal]

NARRATIVE: CASE EVENT DATE: 20251108
